FAERS Safety Report 10266350 (Version 1)
Quarter: 2014Q2

REPORT INFORMATION
  Report Type: Spontaneous
  Country: IN (occurrence: IN)
  Receive Date: 20140627
  Receipt Date: 20140627
  Transmission Date: 20141212
  Serious: Yes (Death, Other)
  Sender: FDA-Public Use
  Company Number: IN-009507513-1406IND011737

PATIENT
  Age: 61 Year
  Sex: Male

DRUGS (1)
  1. JANUMET [Suspect]
     Indication: DIABETES MELLITUS
     Dosage: STRENGTH: 50/500, DOSE: 1, UNITS NOT PROVIDED, QD
     Route: 048

REACTIONS (1)
  - Myocardial infarction [Fatal]
